FAERS Safety Report 8925104 (Version 1)
Quarter: 2012Q4

REPORT INFORMATION
  Report Type: Spontaneous
  Country: FR (occurrence: None)
  Receive Date: 20121116
  Receipt Date: 20121116
  Transmission Date: 20130627
  Serious: Yes (Hospitalization)
  Sender: FDA-Public Use
  Company Number: B0834659A

PATIENT
  Sex: Female

DRUGS (14)
  1. ONDANSETRON HYDROCHLORIDE [Suspect]
     Route: 064
     Dates: start: 20120326
  2. CIMETIDINE [Suspect]
     Route: 064
     Dates: start: 20120426
  3. MIDAZOLAM [Suspect]
     Route: 064
  4. ATRACURIUM BESYLATE [Suspect]
     Route: 064
     Dates: start: 20120304
  5. SUFENTANIL [Suspect]
     Route: 064
     Dates: start: 20120304
  6. TAZOCILLINE [Suspect]
     Route: 064
     Dates: start: 20120316, end: 20120320
  7. BETAMETHASONE [Suspect]
     Route: 064
     Dates: start: 20120316
  8. KETAMINE [Suspect]
     Route: 064
     Dates: start: 20120316
  9. PARACETAMOL [Suspect]
     Route: 064
     Dates: start: 20120324
  10. ATOSIBAN [Suspect]
     Route: 064
     Dates: start: 20120324
  11. ESOMEPRAZOLE [Suspect]
     Route: 064
     Dates: start: 20120326
  12. ENOXAPARIN [Suspect]
     Route: 064
     Dates: start: 20120326
  13. CLINOMEL [Suspect]
     Route: 064
     Dates: start: 20120326
  14. EMLA [Suspect]
     Route: 064
     Dates: start: 20120426

REACTIONS (2)
  - Maternal drugs affecting foetus [None]
  - Foetal growth restriction [None]
